FAERS Safety Report 8096373-1 (Version None)
Quarter: 2012Q1

REPORT INFORMATION
  Report Type: 
  Country: None (occurrence: None)
  Receive Date: 20120129
  Receipt Date: 20111107
  Transmission Date: 20120608
  Serious: No
  Sender: FDA-Public Use
  Company Number: US-ABBOTT-11P-163-0872620-00

PATIENT
  Sex: Male
  Weight: 99.88 kg

DRUGS (6)
  1. ENALAPRIL [Concomitant]
     Indication: HYPERTENSION
  2. GABAPENTIN [Concomitant]
     Indication: NEURALGIA
  3. TRAMADOL HCL [Concomitant]
     Indication: PRODUCT USED FOR UNKNOWN INDICATION
  4. HUMIRA [Suspect]
     Indication: PSORIATIC ARTHROPATHY
     Dates: start: 20110801
  5. HUMIRA [Suspect]
     Indication: PSORIASIS
  6. CLARITIN [Concomitant]
     Indication: PRODUCT USED FOR UNKNOWN INDICATION

REACTIONS (4)
  - OEDEMA PERIPHERAL [None]
  - ARTHRALGIA [None]
  - INJECTION SITE PAIN [None]
  - DRUG INEFFECTIVE [None]
